FAERS Safety Report 7611351-1 (Version None)
Quarter: 2011Q3

REPORT INFORMATION
  Report Type: 
  Country: None (occurrence: None)
  Receive Date: 20110715
  Receipt Date: 20110706
  Transmission Date: 20111222
  Serious: Yes (Hospitalization)
  Sender: FDA-Public Use
  Company Number: IT-ABBOTT-11P-083-0836611-00

PATIENT
  Age: 62 Year
  Sex: Female

DRUGS (3)
  1. VALPROATE SODIUM [Interacting]
     Indication: BIPOLAR I DISORDER
  2. DISULFIRAM [Suspect]
     Indication: ALCOHOLISM
     Dosage: DAILY
  3. 4-AMINO-3-HYDROXYBUTYRIC ACID/GAMMA-AMINOBUTYRIC ACID/MAGNESIUM GLUTAM [Interacting]
     Indication: ALCOHOLISM
     Dosage: DAILY

REACTIONS (17)
  - COGNITIVE DISORDER [None]
  - PSYCHOTIC BEHAVIOUR [None]
  - DELUSION [None]
  - HYPOMANIA [None]
  - ATTENTION DEFICIT/HYPERACTIVITY DISORDER [None]
  - DYSPHORIA [None]
  - MEMORY IMPAIRMENT [None]
  - NEUROTOXICITY [None]
  - GRAND MAL CONVULSION [None]
  - CONFABULATION [None]
  - DRUG RESISTANCE [None]
  - DRUG INTERACTION [None]
  - ILLOGICAL THINKING [None]
  - HEPATIC ENZYME INCREASED [None]
  - EPILEPSY [None]
  - CONFUSIONAL STATE [None]
  - PSYCHOTIC DISORDER [None]
